FAERS Safety Report 4398307-X (Version None)
Quarter: 2004Q3

REPORT INFORMATION
  Report Type: 
  Country: None (occurrence: None)
  Receive Date: 20040712
  Receipt Date: 20040628
  Transmission Date: 20050211
  Serious: Yes (Other)
  Sender: FDA-Public Use
  Company Number: 2004043589

PATIENT
  Sex: Female

DRUGS (2)
  1. ZOLOFT [Suspect]
     Indication: DEPRESSION
     Dosage: 24 MG (25 MG, 1 IN 1 D) ORAL
     Route: 048
     Dates: start: 20040611, end: 20040618
  2. ALPRAZOLAM [Concomitant]

REACTIONS (1)
  - RETINAL DETACHMENT [None]
